FAERS Safety Report 16357711 (Version 1)
Quarter: 2019Q2

REPORT INFORMATION
  Report Type: Spontaneous
  Country: DE (occurrence: DE)
  Receive Date: 20190527
  Receipt Date: 20190527
  Transmission Date: 20190711
  Serious: Yes (Hospitalization, Other)
  Sender: FDA-Public Use
  Company Number: PHHY2019DE116257

PATIENT
  Age: 27 Year
  Sex: Female

DRUGS (2)
  1. REBIF [Suspect]
     Active Substance: INTERFERON BETA-1A
     Indication: MULTIPLE SCLEROSIS
     Dosage: 44 UG, UNK (TIME INTERVAL: 0.33 WK)
     Route: 058
     Dates: start: 2007
  2. IBUPROFEN. [Suspect]
     Active Substance: IBUPROFEN
     Indication: INFLUENZA LIKE ILLNESS
     Dosage: UNK
     Route: 065

REACTIONS (11)
  - Malaise [Unknown]
  - Pneumonia bacterial [Unknown]
  - Blood creatinine increased [Not Recovered/Not Resolved]
  - Cystatin C increased [Not Recovered/Not Resolved]
  - Influenza like illness [Not Recovered/Not Resolved]
  - Glomerular filtration rate abnormal [Not Recovered/Not Resolved]
  - Appendicitis [Unknown]
  - Herpes zoster [Unknown]
  - Apathy [Unknown]
  - White blood cell count decreased [Not Recovered/Not Resolved]
  - Influenza [Unknown]

NARRATIVE: CASE EVENT DATE: 2007
